FAERS Safety Report 5030014-2 (Version None)
Quarter: 2006Q2

REPORT INFORMATION
  Report Type: 
  Country: None (occurrence: None)
  Receive Date: 20060614
  Receipt Date: 20060524
  Transmission Date: 20061013
  Serious: Yes (Other)
  Sender: FDA-Public Use
  Company Number: BR200605001459

PATIENT
  Age: 66 Year
  Sex: Male

DRUGS (4)
  1. FORTEO [Suspect]
     Indication: OSTEOPOROSIS
     Dosage: 20 UG, DAILY (1/D), SUBCUTANEOUS
     Route: 058
     Dates: start: 20060203, end: 20060430
  2. FORTEO [Concomitant]
  3. CORTICOSTEROIDS [Concomitant]
  4. IMMUNOSUPPRESSIVE AGENTS [Concomitant]

REACTIONS (3)
  - METASTASES TO SALIVARY GLAND [None]
  - METASTATIC SQUAMOUS CELL CARCINOMA [None]
  - WOUND DEHISCENCE [None]
